FAERS Safety Report 14366229 (Version 1)
Quarter: 2018Q1

REPORT INFORMATION
  Report Type: Spontaneous
  Country: US (occurrence: US)
  Receive Date: 20180109
  Receipt Date: 20180109
  Transmission Date: 20180509
  Serious: No
  Sender: FDA-Public Use
  Company Number: US-BAYER-2018-003740

PATIENT
  Sex: Female

DRUGS (1)
  1. MIRALAX [Suspect]
     Active Substance: POLYETHYLENE GLYCOL 3350
     Route: 065

REACTIONS (5)
  - Product taste abnormal [Unknown]
  - Product use issue [Unknown]
  - Poor quality drug administered [Unknown]
  - Product use complaint [Unknown]
  - Product odour abnormal [Unknown]
